FAERS Safety Report 9041241 (Version 3)
Quarter: 2013Q3

REPORT INFORMATION
  Report Type: Report from Study
  Country: US (occurrence: US)
  Receive Date: 20130129
  Receipt Date: 20130802
  Transmission Date: 20140515
  Serious: Yes (Other)
  Sender: FDA-Public Use
  Company Number: US-NOVOPROD-369277

PATIENT
  Age: 11 Year
  Sex: Male
  Weight: 42.9 kg

DRUGS (2)
  1. NORDITROPIN FLEXPRO [Suspect]
     Indication: GROWTH RETARDATION
     Dosage: UNK
     Route: 058
     Dates: start: 20100810, end: 20130111
  2. NORDITROPIN FLEXPRO [Suspect]
     Dosage: 1.6 MG, UNK
     Dates: start: 20121002

REACTIONS (1)
  - Juvenile melanoma benign [Recovered/Resolved]
